FAERS Safety Report 16684517 (Version 4)
Quarter: 2021Q3

REPORT INFORMATION
  Report Type: Report from Study
  Country: JP (occurrence: JP)
  Receive Date: 20190808
  Receipt Date: 20210706
  Transmission Date: 20211014
  Serious: Yes (Hospitalization)
  Sender: FDA-Public Use
  Company Number: JP-ASTRAZENECA-2019SE39131

PATIENT
  Age: 27223 Day
  Sex: Female
  Weight: 43 kg

DRUGS (2)
  1. RADIOTHERAPY [Suspect]
     Active Substance: RADIATION THERAPY
     Indication: NON-SMALL CELL LUNG CANCER
     Dosage: TOTAL DOSE: 60 GY IN 30 FR, DOSE DISTRIBUTION (V20): UNKNOWN
     Route: 065
     Dates: start: 20181225, end: 20190207
  2. IMFINZI [Suspect]
     Active Substance: DURVALUMAB
     Indication: NON-SMALL CELL LUNG CANCER
     Route: 041
     Dates: start: 20190227, end: 20190227

REACTIONS (2)
  - Radiation pneumonitis [Recovered/Resolved]
  - Infusion related reaction [Recovered/Resolved]

NARRATIVE: CASE EVENT DATE: 20190227
